FAERS Safety Report 20232325 (Version 1)
Quarter: 2021Q4

REPORT INFORMATION
  Report Type: Spontaneous
  Country: US (occurrence: US)
  Receive Date: 20211227
  Receipt Date: 20211227
  Transmission Date: 20220303
  Serious: Yes (Other)
  Sender: FDA-Public Use
  Company Number: US-SA-SAC20211224000111

PATIENT
  Age: 75 Year
  Sex: Male
  Weight: 83 kg

DRUGS (8)
  1. PLAVIX [Suspect]
     Active Substance: CLOPIDOGREL BISULFATE
     Indication: Angiopathy
     Dosage: 75 MG, QD
     Route: 048
  2. PLAVIX [Suspect]
     Active Substance: CLOPIDOGREL BISULFATE
     Indication: Aortic valve replacement
  3. PLAVIX [Suspect]
     Active Substance: CLOPIDOGREL BISULFATE
     Indication: Coronary artery bypass
  4. ASPIRIN [Concomitant]
     Active Substance: ASPIRIN
  5. LIPITOR [Concomitant]
     Active Substance: ATORVASTATIN CALCIUM
  6. TIAPAMIL [Concomitant]
     Dosage: UNK
  7. ZETA [FUSIDIC ACID] [Concomitant]
     Dosage: UNK UNK, QD
  8. BISACODYL [Concomitant]
     Active Substance: BISACODYL
     Dosage: UNK UNK, QD

REACTIONS (5)
  - Transient ischaemic attack [Unknown]
  - Acute coronary syndrome [Unknown]
  - Haemorrhage [Unknown]
  - Haematoma [Unknown]
  - Stent placement [Unknown]
